FAERS Safety Report 4923572-7 (Version None)
Quarter: 2006Q1

REPORT INFORMATION
  Report Type: 
  Country: None (occurrence: None)
  Receive Date: 20060221
  Receipt Date: 20060209
  Transmission Date: 20060701
  Serious: Yes (Hospitalization, Other)
  Sender: FDA-Public Use
  Company Number: 2006020611

PATIENT
  Sex: Female
  Weight: 68.0396 kg

DRUGS (2)
  1. CELEBREX [Suspect]
     Indication: ARTHRITIS
     Dosage: 200 MG (200 MG, 1 IN 1 D)
  2. LEVAQUIN [Suspect]
     Indication: MASTOIDITIS
     Dosage: (750 MG), INTRAVENOUS
     Route: 042
     Dates: start: 20050101

REACTIONS (4)
  - ALOPECIA [None]
  - HEADACHE [None]
  - MASTOIDITIS [None]
  - SINUS CONGESTION [None]
